FAERS Safety Report 17022484 (Version 1)
Quarter: 2019Q4

REPORT INFORMATION
  Report Type: Spontaneous
  Country: GB (occurrence: GB)
  Receive Date: 20191112
  Receipt Date: 20191112
  Transmission Date: 20200122
  Serious: Yes (Hospitalization, Other)
  Sender: FDA-Public Use
  Company Number: GB-JNJFOC-20191047840

PATIENT
  Age: 60 Year
  Sex: Female

DRUGS (8)
  1. LANSOPRAZOLE. [Concomitant]
     Active Substance: LANSOPRAZOLE
     Route: 065
  2. CALCIUM PHOSPHATE [Concomitant]
     Active Substance: CALCIUM PHOSPHATE
     Route: 065
  3. STELARA [Suspect]
     Active Substance: USTEKINUMAB
     Indication: CROHN^S DISEASE
     Dosage: STAT
     Route: 042
     Dates: start: 20180914, end: 20180914
  4. STELARA [Suspect]
     Active Substance: USTEKINUMAB
     Route: 058
     Dates: start: 201906
  5. VITAMIN D                          /00107901/ [Concomitant]
     Active Substance: ERGOCALCIFEROL
     Route: 065
  6. VARENICLINE [Concomitant]
     Active Substance: VARENICLINE
     Route: 065
     Dates: start: 201907
  7. LERCANIDIPINE [Concomitant]
     Active Substance: LERCANIDIPINE
     Route: 065
  8. STELARA [Suspect]
     Active Substance: USTEKINUMAB
     Route: 058
     Dates: start: 201811

REACTIONS (9)
  - Productive cough [Unknown]
  - Pustule [Unknown]
  - Musculoskeletal stiffness [Unknown]
  - Abnormal loss of weight [Unknown]
  - Skin exfoliation [Unknown]
  - Lymphadenopathy [Unknown]
  - Dermatitis exfoliative [Not Recovered/Not Resolved]
  - Pruritus [Unknown]
  - Headache [Unknown]

NARRATIVE: CASE EVENT DATE: 201812
